FAERS Safety Report 5409990-1 (Version None)
Quarter: 2007Q3

REPORT INFORMATION
  Report Type: 
  Country: None (occurrence: None)
  Receive Date: 20070809
  Receipt Date: 20070729
  Transmission Date: 20080115
  Serious: Yes (Other)
  Sender: FDA-Public Use
  Company Number: US-PFIZER INC-2007063620

PATIENT
  Sex: Male
  Weight: 70.3 kg

DRUGS (4)
  1. CHANTIX [Suspect]
     Indication: SMOKING CESSATION THERAPY
  2. INDERAL [Concomitant]
  3. ALBUTEROL [Concomitant]
  4. ADVAIR DISKUS 100/50 [Concomitant]

REACTIONS (11)
  - ABNORMAL BEHAVIOUR [None]
  - AGGRESSION [None]
  - AMNESIA [None]
  - ASTHMA [None]
  - CONVULSION [None]
  - DISTURBANCE IN ATTENTION [None]
  - NIGHTMARE [None]
  - SPEECH DISORDER [None]
  - THIRST [None]
  - TREMOR [None]
  - UNEVALUABLE EVENT [None]
